FAERS Safety Report 14193060 (Version 3)
Quarter: 2019Q2

REPORT INFORMATION
  Report Type: Report from Study
  Country: US (occurrence: US)
  Receive Date: 20171115
  Receipt Date: 20190405
  Transmission Date: 20190711
  Serious: Yes (Hospitalization, Other)
  Sender: FDA-Public Use
  Company Number: PHEH2017US036639

PATIENT
  Age: 8 Year
  Sex: Female
  Weight: 30.8 kg

DRUGS (5)
  1. ILARIS [Suspect]
     Active Substance: CANAKINUMAB
     Indication: FAMILIAL MEDITERRANEAN FEVER
     Dosage: 60 MG, QMO
     Route: 058
     Dates: start: 201707
  2. ILARIS [Suspect]
     Active Substance: CANAKINUMAB
     Indication: FAMILIAL AMYLOIDOSIS
     Dosage: 150 ML, UNK (EVERY 28 DAYS)
     Route: 065
  3. COLCHICINE. [Concomitant]
     Active Substance: COLCHICINE
     Dosage: 1.2 ML, QD
     Route: 065
  4. COLCHICINE. [Concomitant]
     Active Substance: COLCHICINE
     Indication: RENAL DISORDER
     Dosage: 0.6 MG, BID
     Route: 048
     Dates: start: 201411
  5. PREDNISONE. [Concomitant]
     Active Substance: PREDNISONE
     Indication: FAMILIAL MEDITERRANEAN FEVER
     Dosage: 10 MG,(DAILY) PRN
     Route: 048
     Dates: start: 20170311

REACTIONS (4)
  - Tonsillitis [Recovered/Resolved]
  - Product use in unapproved indication [Unknown]
  - Pharyngitis streptococcal [Recovered/Resolved]
  - Pain [Unknown]

NARRATIVE: CASE EVENT DATE: 20171012
